FAERS Safety Report 8372696-3 (Version None)
Quarter: 2012Q2

REPORT INFORMATION
  Report Type: 
  Country: None (occurrence: None)
  Receive Date: 20120521
  Receipt Date: 20120514
  Transmission Date: 20120825
  Serious: Yes (Death, Other)
  Sender: FDA-Public Use
  Company Number: FR-CELGENEUS-056-CCAZA-09042159

PATIENT

DRUGS (6)
  1. VIDAZA [Suspect]
     Indication: MYELODYSPLASTIC SYNDROME
  2. ATRACURIUM BESYLATE [Suspect]
     Dosage: 45 MILLIGRAM/SQ. METER
     Route: 048
  3. ATRACURIUM BESYLATE [Suspect]
     Indication: MYELODYSPLASTIC SYNDROME
  4. VIDAZA [Suspect]
     Dosage: 75 MILLIGRAM/SQ. METER
     Route: 058
  5. VALPROIC ACID [Suspect]
     Indication: MYELODYSPLASTIC SYNDROME
  6. VALPROIC ACID [Suspect]
     Dosage: 35-50 MG/KG
     Route: 048

REACTIONS (16)
  - MYOCARDIAL INFARCTION [None]
  - INFECTION [None]
  - HAEMORRHAGE [None]
  - CONFUSIONAL STATE [None]
  - VOMITING [None]
  - SOMNOLENCE [None]
  - SEPSIS [None]
  - CONSTIPATION [None]
  - FATIGUE [None]
  - DISEASE PROGRESSION [None]
  - ASPERGILLOSIS [None]
  - ADMINISTRATION SITE REACTION [None]
  - MUCOSAL DRYNESS [None]
  - PNEUMONIA [None]
  - NAUSEA [None]
  - NO THERAPEUTIC RESPONSE [None]
